FAERS Safety Report 8595749 (Version 4)
Quarter: 2012Q4

REPORT INFORMATION
  Report Type: Report from Study
  Country: ES (occurrence: ES)
  Receive Date: 20120604
  Receipt Date: 20121015
  Transmission Date: 20130627
  Serious: Yes (Death, Hospitalization)
  Sender: FDA-Public Use
  Company Number: ES-BRISTOL-MYERS SQUIBB COMPANY-16326571

PATIENT
  Age: 62 Year
  Sex: Male

DRUGS (13)
  1. IPILIMUMAB [Suspect]
     Indication: PROSTATE CANCER
     Route: 042
     Dates: start: 20111125, end: 20111216
  2. BLINDED: PLACEBO [Suspect]
     Indication: PROSTATE CANCER
     Route: 042
     Dates: start: 20111125, end: 20111216
  3. METAMIZOL [Concomitant]
     Dates: start: 20120110, end: 20120112
  4. DEXKETOPROFEN TROMETAMOL [Concomitant]
     Dates: start: 20120107, end: 20120112
  5. FORTECORTIN [Concomitant]
     Dates: start: 20120112, end: 20120112
  6. ENOXAPARIN [Concomitant]
     Dates: start: 20120107, end: 20120112
  7. DOMPERIDONE [Concomitant]
     Dates: start: 20120107, end: 20120112
  8. METOCLOPRAMIDE HCL [Concomitant]
     Dates: start: 20120107, end: 20120112
  9. OXYNORM [Concomitant]
     Route: 042
     Dates: start: 20120109, end: 20120113
  10. FUROSEMIDE [Concomitant]
     Route: 042
     Dates: start: 20120110, end: 20120112
  11. ZOLADEX [Concomitant]
     Dates: start: 20111125, end: 20120102
  12. MICARDIS [Concomitant]
     Dates: start: 2010
  13. CALCIUM-SANDOZ [Concomitant]
     Dates: start: 20110114, end: 20120102

REACTIONS (3)
  - Cardiac arrest [Fatal]
  - Myocarditis [Fatal]
  - Tumour pain [Not Recovered/Not Resolved]
